FAERS Safety Report 5133962-8 (Version None)
Quarter: 2006Q4

REPORT INFORMATION
  Report Type: 
  Country: None (occurrence: None)
  Receive Date: 20061018
  Receipt Date: 20061009
  Transmission Date: 20070319
  Serious: Yes (Hospitalization)
  Sender: FDA-Public Use
  Company Number: 2006124188

PATIENT
  Age: 76 Year
  Sex: Male
  Weight: 90.7194 kg

DRUGS (2)
  1. ROLAIDS [Suspect]
     Dosage: 5 TABLETS DAILY, ORAL
     Route: 048
     Dates: start: 20061005, end: 20061009
  2. WARFARIN SODIUM [Suspect]
     Dosage: ORAL
     Route: 048
     Dates: end: 20061011

REACTIONS (1)
  - OESOPHAGEAL HAEMORRHAGE [None]
